FAERS Safety Report 4363235-2 (Version None)
Quarter: 2004Q2

REPORT INFORMATION
  Report Type: 
  Country: None (occurrence: None)
  Receive Date: 20040518
  Receipt Date: 20040507
  Transmission Date: 20050107
  Serious: Yes (Death)
  Sender: FDA-Public Use
  Company Number: 04H-163-0260200-00

PATIENT
  Sex: 0

DRUGS (4)
  1. MORPHINE SULFATE INJ [Suspect]
  2. AMINOSYN [Concomitant]
  3. GLUCOSE INJECTION [Concomitant]
  4. LIPOSYN II [Concomitant]

REACTIONS (1)
  - DRUG TOXICITY [None]
